FAERS Safety Report 23670073 (Version 1)
Quarter: 2024Q1

REPORT INFORMATION
  Report Type: Report from Study
  Country: CA (occurrence: CA)
  Receive Date: 20240325
  Receipt Date: 20240325
  Transmission Date: 20240409
  Serious: Yes (Death, Other)
  Sender: FDA-Public Use
  Company Number: CA-TAKEDA-2024TUS027643

PATIENT
  Age: 68 Year
  Sex: Female

DRUGS (13)
  1. PONATINIB [Suspect]
     Active Substance: PONATINIB
     Indication: Philadelphia positive acute lymphocytic leukaemia
     Dosage: UNK
     Route: 065
     Dates: start: 20190621
  2. PONATINIB [Suspect]
     Active Substance: PONATINIB
     Dosage: 15 MILLIGRAM, QD
     Route: 048
  3. VALACYCLOVIR [Concomitant]
     Active Substance: VALACYCLOVIR HYDROCHLORIDE
     Dosage: UNK
     Route: 065
  4. AMIODARONE [Concomitant]
     Active Substance: AMIODARONE
     Dosage: UNK
     Route: 065
  5. CALCIUM [Concomitant]
     Active Substance: CALCIUM
     Dosage: UNK
     Route: 065
  6. DOCUSATE SODIUM [Concomitant]
     Active Substance: DOCUSATE SODIUM
     Dosage: UNK
     Route: 065
  7. RANITIDINE [Concomitant]
     Active Substance: RANITIDINE
     Dosage: UNK
     Route: 065
  8. VITAMIN D NOS [Concomitant]
     Active Substance: VITAMIN D NOS
     Dosage: UNK
     Route: 065
  9. CALCITRIOL [Concomitant]
     Active Substance: CALCITRIOL
     Dosage: UNK
     Route: 065
  10. DASATINIB [Concomitant]
     Active Substance: DASATINIB
     Dosage: UNK
     Route: 065
  11. TYLENOL [Concomitant]
     Active Substance: ACETAMINOPHEN
     Dosage: UNK
     Route: 065
  12. LORAZEPAM [Concomitant]
     Active Substance: LORAZEPAM
     Dosage: UNK
     Route: 065
  13. LEVOTHYROXINE [Concomitant]
     Active Substance: LEVOTHYROXINE\LEVOTHYROXINE SODIUM
     Dosage: UNK
     Route: 065

REACTIONS (1)
  - Death [Fatal]

NARRATIVE: CASE EVENT DATE: 20240301
